FAERS Safety Report 9346367 (Version 4)
Quarter: 2014Q3

REPORT INFORMATION
  Report Type: Spontaneous
  Country: US (occurrence: US)
  Receive Date: 20130613
  Receipt Date: 20140919
  Transmission Date: 20150326
  Serious: Yes (Hospitalization, Congenital Anomaly, Other)
  Sender: FDA-Public Use
  Company Number: US-PFIZER INC-2013176451

PATIENT
  Sex: Female
  Weight: 3.1 kg

DRUGS (37)
  1. LORTAB [Concomitant]
     Active Substance: ACETAMINOPHEN\HYDROCODONE BITARTRATE
     Indication: PAIN
     Dosage: UNK, FOUR TO SIX HOURS AS NEEDED
     Route: 064
     Dates: start: 20041119, end: 20061007
  2. TESSALON [Concomitant]
     Active Substance: BENZONATATE
     Indication: COUGH
     Dosage: 200 MG, AS NEEDED
     Route: 064
     Dates: start: 20050427, end: 20061007
  3. ZOFRAN [Concomitant]
     Active Substance: ONDANSETRON HYDROCHLORIDE
     Dosage: 4 MG, 1 TO 2 TABLETS EVERY EIGHT HOURS AS NEEDED
     Route: 064
     Dates: start: 20060911, end: 20061007
  4. DICYCLOMINE [Concomitant]
     Active Substance: DICYCLOMINE HYDROCHLORIDE
     Dosage: 20 MG, 1X/DAY AT BEDTIME
     Route: 064
     Dates: start: 20061007
  5. METHYLDOPA. [Concomitant]
     Active Substance: METHYLDOPA
     Indication: HYPERTENSION
     Dosage: 250 MG, 2X/DAY
     Route: 064
     Dates: start: 20061007, end: 20070108
  6. ZANTAC [Concomitant]
     Active Substance: RANITIDINE HYDROCHLORIDE
     Dosage: 150 MG, 2X/DAY
     Route: 064
     Dates: start: 20061007, end: 20070108
  7. AMOXICILLIN/POTASSIUM CLAVULANATE [Concomitant]
     Dosage: 875-125 MG TABLET TWICE DAILY FOR 7 DAYS
     Route: 064
     Dates: start: 20051012, end: 20061007
  8. EFFEXOR [Suspect]
     Active Substance: VENLAFAXINE HYDROCHLORIDE
     Indication: DEPRESSION
     Dosage: UNK
     Route: 064
  9. PRENATAL VITAMINS [Concomitant]
     Active Substance: VITAMINS
     Dosage: 1 DF, 1X/DAY
     Route: 064
     Dates: start: 20060821
  10. PHENERGAN [Concomitant]
     Active Substance: PROMETHAZINE HYDROCHLORIDE
     Indication: VOMITING
  11. VENTOLIN [Concomitant]
     Active Substance: ALBUTEROL SULFATE
     Indication: DYSPNOEA
     Dosage: 1-2 PUFFS AS NEEDED
     Route: 064
     Dates: start: 20050425, end: 20061007
  12. ANUSOL-HC [Concomitant]
     Indication: HAEMORRHOIDS
     Dosage: 25 MG, 2X/DAY
     Route: 064
     Dates: start: 20070227
  13. BENZONATATE. [Concomitant]
     Active Substance: BENZONATATE
     Dosage: UNK
     Route: 064
  14. CYCLOBENZAPRINE [Concomitant]
     Active Substance: CYCLOBENZAPRINE
     Indication: HYPOTONIA
     Dosage: 10 MG, AS NEEDED
     Route: 064
     Dates: start: 20041105, end: 20061007
  15. TOPAMAX [Concomitant]
     Active Substance: TOPIRAMATE
     Indication: MIGRAINE
     Dosage: 50 MG, 1X/DAY
     Route: 064
     Dates: start: 20041105, end: 20061007
  16. ORTHO EVRA [Concomitant]
     Active Substance: ETHINYL ESTRADIOL\NORELGESTROMIN
     Dosage: 150-20MCG/24HR WEEKLY
     Route: 064
     Dates: start: 20050330, end: 20061007
  17. EFFEXOR XR [Concomitant]
     Active Substance: VENLAFAXINE HYDROCHLORIDE
     Indication: DEPRESSION
     Dosage: 150 MG, 1X/DAY
     Route: 064
     Dates: start: 20050928, end: 20061016
  18. EFFEXOR XR [Concomitant]
     Active Substance: VENLAFAXINE HYDROCHLORIDE
     Dosage: 300 MG, DAILY
     Route: 064
     Dates: start: 20061006, end: 20071016
  19. PYRIDOXINE [Concomitant]
     Active Substance: PYRIDOXINE
     Dosage: 25 MG, 1X/DAY
     Route: 064
     Dates: start: 20061007, end: 20061013
  20. ALDOMET [Concomitant]
     Active Substance: METHYLDOPA
     Indication: HYPERTENSION
     Dosage: 500 MG, 2X/DAY
     Route: 064
  21. ANAPROX [Concomitant]
     Active Substance: NAPROXEN SODIUM
     Dosage: UNK
     Route: 064
  22. ZITHROMAX [Concomitant]
     Active Substance: AZITHROMYCIN DIHYDRATE
     Dosage: UNK
     Route: 064
  23. FIORICET [Concomitant]
     Active Substance: ACETAMINOPHEN\BUTALBITAL\CAFFEINE
     Dosage: 50-325-40 MG AS NEEDED
     Route: 064
     Dates: start: 20040525, end: 20061007
  24. COMPAZINE [Concomitant]
     Active Substance: PROCHLORPERAZINE MALEATE
     Indication: NAUSEA
     Dosage: 10 MG HALF TO ONE TABLET EVERY SIX HOURS AS NEEDED
     Route: 064
     Dates: start: 20061007
  25. ALBUTEROL. [Concomitant]
     Active Substance: ALBUTEROL
     Dosage: UNK
     Route: 064
  26. VENLAFAXINE HCL [Suspect]
     Active Substance: VENLAFAXINE HYDROCHLORIDE
     Dosage: UNK
     Route: 064
  27. PHENERGAN [Concomitant]
     Active Substance: PROMETHAZINE HYDROCHLORIDE
     Indication: NAUSEA
     Dosage: 25 MG, EVERY 4 HRS AS NEEDED
     Route: 064
     Dates: start: 20060906, end: 20060911
  28. ERYTHROMYCIN. [Concomitant]
     Active Substance: ERYTHROMYCIN
     Dosage: UNK
     Route: 064
  29. MACRODANTIN [Concomitant]
     Active Substance: NITROFURANTOIN
     Dosage: UNK
     Route: 064
  30. MIDRIN [Concomitant]
     Active Substance: ACETAMINOPHEN\DICHLORALPHENAZONE\ISOMETHEPTENE
     Dosage: UNK
     Route: 064
  31. LABETALOL [Concomitant]
     Active Substance: LABETALOL\LABETALOL HYDROCHLORIDE
     Indication: HYPERTENSION
     Dosage: 100 MG, 2X/DAY
     Route: 064
     Dates: start: 20060824, end: 20061007
  32. ZOLPIDEM [Concomitant]
     Active Substance: ZOLPIDEM\ZOLPIDEM TARTRATE
     Dosage: 5 MG, UNK
     Route: 064
     Dates: start: 20070118
  33. DOXYCYCLINE. [Concomitant]
     Active Substance: DOXYCYCLINE
     Dosage: UNK
     Route: 064
  34. NICOTINE. [Concomitant]
     Active Substance: NICOTINE
     Dosage: 21MG/24HR DAILY
     Route: 064
     Dates: start: 20050317, end: 20061007
  35. THIAMINE [Concomitant]
     Active Substance: THIAMINE
     Indication: VITAMIN SUPPLEMENTATION
     Dosage: 100 MG, 1X/DAY
     Route: 064
     Dates: start: 20061006
  36. MECLIZINE [Concomitant]
     Active Substance: MECLIZINE\MECLIZINE HYDROCHLORIDE
     Indication: DIZZINESS
     Dosage: 50 MG, 2X/DAY AS NEEDED
     Route: 064
     Dates: start: 20061013, end: 20070108
  37. ATENOLOL. [Concomitant]
     Active Substance: ATENOLOL
     Dosage: UNK
     Route: 064

REACTIONS (7)
  - Premature baby [Unknown]
  - Congenital anomaly [Unknown]
  - Persistent foetal circulation [Unknown]
  - Maternal exposure during pregnancy [Unknown]
  - Patent ductus arteriosus [Unknown]
  - Pulmonary artery stenosis congenital [Unknown]
  - Atrial septal defect [Unknown]

NARRATIVE: CASE EVENT DATE: 20070308
